FAERS Safety Report 20384807 (Version 3)
Quarter: 2022Q1

REPORT INFORMATION
  Report Type: Spontaneous
  Country: US (occurrence: None)
  Receive Date: 20220127
  Receipt Date: 20220329
  Transmission Date: 20220423
  Serious: Yes (Life-Threatening, Hospitalization, Other)
  Sender: FDA-Public Use
  Company Number: 2022A035695

PATIENT
  Age: 768 Month
  Sex: Male
  Weight: 112.5 kg

DRUGS (2)
  1. BYDUREON BCISE [Suspect]
     Active Substance: EXENATIDE
     Indication: Diabetes mellitus
     Route: 058
  2. BYDUREON [Suspect]
     Active Substance: EXENATIDE
     Indication: Diabetes mellitus
     Route: 058

REACTIONS (9)
  - Loss of consciousness [Recovered/Resolved]
  - Spinal cord injury cervical [Not Recovered/Not Resolved]
  - Cerebrospinal fluid leakage [Unknown]
  - Scar [Recovering/Resolving]
  - Injection site haemorrhage [Recovered/Resolved]
  - Thyroid mass [Unknown]
  - Product dose omission issue [Recovered/Resolved]
  - Device leakage [Unknown]
  - Device delivery system issue [Unknown]

NARRATIVE: CASE EVENT DATE: 20210101
